FAERS Safety Report 20472075 (Version 1)
Quarter: 2022Q1

REPORT INFORMATION
  Report Type: Spontaneous
  Country: US (occurrence: US)
  Receive Date: 20220214
  Receipt Date: 20220214
  Transmission Date: 20220423
  Serious: No
  Sender: FDA-Public Use
  Company Number: US-AMGEN-USASP2022024617

PATIENT
  Sex: Female

DRUGS (1)
  1. EVENITY [Suspect]
     Active Substance: ROMOSOZUMAB-AQQG
     Indication: Osteoporosis
     Dosage: UNK
     Route: 065
     Dates: start: 2021

REACTIONS (7)
  - Dental implantation [Recovering/Resolving]
  - Presyncope [Unknown]
  - Skin warm [Unknown]
  - Blood pressure decreased [Unknown]
  - Gingival discomfort [Unknown]
  - Peripheral swelling [Unknown]
  - Gingival discolouration [Unknown]

NARRATIVE: CASE EVENT DATE: 20220101
